FAERS Safety Report 8974933 (Version 2)
Quarter: 2013Q1

REPORT INFORMATION
  Report Type: Spontaneous
  Country: IT (occurrence: IT)
  Receive Date: 20121219
  Receipt Date: 20130219
  Transmission Date: 20140127
  Serious: Yes (Other)
  Sender: FDA-Public Use
  Company Number: IT-BAXTER-2012BAX027452

PATIENT
  Age: 75 Year
  Sex: Female

DRUGS (4)
  1. ENDOXAN BAXTER [Suspect]
     Indication: ENDOMETRIAL CANCER
     Route: 042
     Dates: start: 20121210, end: 20121210
  2. CISPLATIN [Suspect]
     Indication: ENDOMETRIAL CANCER
     Route: 042
     Dates: start: 20121210, end: 20121210
  3. ONDANSETRON [Concomitant]
     Indication: ENDOMETRIAL CANCER
     Route: 065
     Dates: start: 20121210, end: 20121210
  4. SOLDESAM [Concomitant]
     Indication: ENDOMETRIAL CANCER
     Route: 065
     Dates: start: 20121210, end: 20121210

REACTIONS (1)
  - Creatinine renal clearance abnormal [Unknown]
